FAERS Safety Report 12681018 (Version 1)
Quarter: 2016Q3

REPORT INFORMATION
  Report Type: Report from Study
  Country: US (occurrence: US)
  Receive Date: 20160824
  Receipt Date: 20160824
  Transmission Date: 20161109
  Serious: Yes (Other)
  Sender: FDA-Public Use
  Company Number: US-AMGEN-USASL2016105727

PATIENT
  Age: 15 Year
  Sex: Female

DRUGS (1)
  1. ENBREL [Suspect]
     Active Substance: ETANERCEPT
     Indication: JUVENILE IDIOPATHIC ARTHRITIS
     Dosage: 25 MG, 3 TIMES/WK
     Route: 065
     Dates: start: 20130709, end: 2014

REACTIONS (2)
  - Incorrect dose administered [Unknown]
  - Uveitis [Unknown]

NARRATIVE: CASE EVENT DATE: 20130709
